FAERS Safety Report 8620590-2 (Version None)
Quarter: 2012Q3

REPORT INFORMATION
  Report Type: 
  Country: None (occurrence: None)
  Receive Date: 20120824
  Receipt Date: 20120817
  Transmission Date: 20120928
  Serious: Yes (Hospitalization)
  Sender: FDA-Public Use
  Company Number: US-ACTELION-A-NJ2012-59845

PATIENT
  Age: 5 Year
  Sex: Male

DRUGS (5)
  1. TYVASO [Concomitant]
  2. TRACLEER [Suspect]
     Indication: PULMONARY ARTERIAL HYPERTENSION
     Dosage: UNK
     Route: 048
     Dates: start: 20080718
  3. SILDENAFIL [Concomitant]
  4. ASPIRIN [Concomitant]
  5. ADCIRCA [Concomitant]

REACTIONS (7)
  - PYREXIA [None]
  - ASTHENIA [None]
  - NASOPHARYNGITIS [None]
  - FATIGUE [None]
  - COUGH [None]
  - RESPIRATORY DISORDER [None]
  - VIRAL INFECTION [None]
